FAERS Safety Report 20912702 (Version 1)
Quarter: 2022Q2

REPORT INFORMATION
  Report Type: Spontaneous
  Country: FR (occurrence: FR)
  Receive Date: 20220603
  Receipt Date: 20220603
  Transmission Date: 20220721
  Serious: Yes (Death)
  Sender: FDA-Public Use
  Company Number: None

PATIENT
  Age: 44 Year
  Sex: Male

DRUGS (3)
  1. BUPRENORPHINE [Suspect]
     Active Substance: BUPRENORPHINE
     Dosage: 16 MILLIGRAM DAILY;  IN 2 DOSES, THERAPY DURATION : 10 YEARS
     Route: 065
     Dates: start: 2010, end: 202007
  2. COCAINE [Concomitant]
     Active Substance: COCAINE
  3. ALCOHOL [Concomitant]
     Active Substance: ALCOHOL

REACTIONS (1)
  - Drug abuse [Fatal]
